FAERS Safety Report 9413783 (Version 4)
Quarter: 2013Q4

REPORT INFORMATION
  Report Type: Spontaneous
  Country: VE (occurrence: VE)
  Receive Date: 20130723
  Receipt Date: 20131014
  Transmission Date: 20140711
  Serious: Yes (Death, Other)
  Sender: FDA-Public Use
  Company Number: VE-AMGEN-VENSP2013050430

PATIENT
  Age: 73 Year
  Sex: Male
  Weight: 76 kg

DRUGS (6)
  1. VECTIBIX [Suspect]
     Indication: COLORECTAL CANCER METASTATIC
     Dosage: 465 MG, EVERY 15 DAYS
     Route: 042
     Dates: start: 20120919, end: 20130306
  2. VECTIBIX [Suspect]
     Indication: METASTASES TO LIVER
  3. XELODA [Concomitant]
     Indication: COLORECTAL CANCER METASTATIC
     Dosage: UNK
     Dates: end: 20130306
  4. XELODA [Concomitant]
     Indication: METASTASES TO LIVER
  5. IRINOTECAN [Concomitant]
     Indication: COLORECTAL CANCER METASTATIC
     Dosage: UNK
     Dates: end: 20130306
  6. IRINOTECAN [Concomitant]
     Indication: METASTASES TO LIVER

REACTIONS (4)
  - Disease progression [Fatal]
  - Liver disorder [Unknown]
  - Leukoencephalopathy [Unknown]
  - Carcinoembryonic antigen increased [Unknown]
